FAERS Safety Report 7177215-5 (Version None)
Quarter: 2010Q4

REPORT INFORMATION
  Report Type: 
  Country: None (occurrence: None)
  Receive Date: 20101220
  Receipt Date: 20101209
  Transmission Date: 20110411
  Serious: Yes (Other)
  Sender: FDA-Public Use
  Company Number: US-ROCHE-745823

PATIENT
  Sex: Female
  Weight: 57 kg

DRUGS (6)
  1. ACTEMRA [Suspect]
     Dosage: 4 MG/KG; FORM INFUSION
     Route: 042
     Dates: start: 20101127
  2. MICARDIS [Concomitant]
     Indication: HYPERTENSION
  3. SYNTHROID [Concomitant]
  4. LOVASTATIN [Concomitant]
  5. EDECRIN [Concomitant]
     Indication: HYPERTENSION
  6. METHOTREXATE [Concomitant]

REACTIONS (3)
  - ABASIA [None]
  - JOINT SWELLING [None]
  - RHEUMATOID ARTHRITIS [None]
